FAERS Safety Report 19181023 (Version 4)
Quarter: 2021Q2

REPORT INFORMATION
  Report Type: Report from Study
  Country: CN (occurrence: CN)
  Receive Date: 20210426
  Receipt Date: 20210527
  Transmission Date: 20210717
  Serious: Yes (Hospitalization)
  Sender: FDA-Public Use
  Company Number: CN-KARYOPHARM-2021KPT000525

PATIENT
  Age: 67 Year
  Sex: Male

DRUGS (7)
  1. SELINEXOR [Suspect]
     Active Substance: SELINEXOR
     Indication: ANGIOCENTRIC LYMPHOMA
  2. OXALIPLATIN. [Suspect]
     Active Substance: OXALIPLATIN
     Indication: PERIPHERAL T-CELL LYMPHOMA UNSPECIFIED REFRACTORY
     Dosage: 136.6 MG, C1D1
     Route: 065
     Dates: start: 20210330, end: 20210330
  3. GEMCITABINE. [Suspect]
     Active Substance: GEMCITABINE
     Indication: ANGIOCENTRIC LYMPHOMA
     Dosage: 820 MG, C1D2
     Route: 042
     Dates: start: 20210331, end: 20210331
  4. GEMCITABINE. [Suspect]
     Active Substance: GEMCITABINE
     Dosage: 1800 MG, C1D8
     Route: 042
     Dates: start: 20210406, end: 20210406
  5. SELINEXOR [Suspect]
     Active Substance: SELINEXOR
     Indication: PERIPHERAL T-CELL LYMPHOMA UNSPECIFIED REFRACTORY
     Dosage: 60 MG, C1D2/C1D9
     Route: 048
     Dates: start: 20210331, end: 20210407
  6. GEMCITABINE. [Suspect]
     Active Substance: GEMCITABINE
     Indication: PERIPHERAL T-CELL LYMPHOMA UNSPECIFIED REFRACTORY
     Dosage: 1000 MG, C1D1
     Route: 042
     Dates: start: 20210330, end: 20210330
  7. OXALIPLATIN. [Suspect]
     Active Substance: OXALIPLATIN
     Indication: ANGIOCENTRIC LYMPHOMA
     Dosage: 100 MG, C1D2
     Route: 065
     Dates: start: 20210331, end: 20210331

REACTIONS (2)
  - Neutrophil count decreased [Recovered/Resolved]
  - Platelet count decreased [Recovered/Resolved]

NARRATIVE: CASE EVENT DATE: 20210408
